FAERS Safety Report 4778755-6 (Version None)
Quarter: 2005Q3

REPORT INFORMATION
  Report Type: 
  Country: None (occurrence: None)
  Receive Date: 20050922
  Receipt Date: 20050915
  Transmission Date: 20060218
  Serious: Yes (Death, Other)
  Sender: FDA-Public Use
  Company Number: 2005119185

PATIENT
  Age: 43 Year
  Sex: Male
  Weight: 70 kg

DRUGS (6)
  1. NEURONTIN [Suspect]
     Indication: EPILEPSY
     Dosage: 1200 MG (1 IN 1 D), ORAL
     Route: 048
     Dates: start: 20040311
  2. SUSTIVA [Suspect]
     Indication: HIV INFECTION
     Dosage: 600 MG (1 IN 1D), ORAL
     Route: 048
     Dates: start: 20020203, end: 20050425
  3. ZIAGEN [Suspect]
     Indication: HIV INFECTION
     Dosage: 600 MG (1 IN 1 D), ORAL
     Route: 048
     Dates: start: 20020203, end: 20050425
  4. VIREAD [Suspect]
     Indication: HIV INFECTION
     Dosage: 245 MG (1 IN 1 D), ORAL
     Route: 048
     Dates: start: 20020203, end: 20050425
  5. VIRAFERONPEG [Suspect]
     Indication: HEPATITIS C
     Dosage: 80 MCG (1 IN1 D), SUBCUTANEOUS
     Route: 058
     Dates: start: 20041112, end: 20050425
  6. RIBAVIRIN [Suspect]
     Indication: HEPATITIS C
     Dosage: 1000 MG (1 IN 1 D), ORAL
     Route: 048
     Dates: start: 20041112, end: 20050425

REACTIONS (7)
  - GENERAL PHYSICAL HEALTH DETERIORATION [None]
  - HAEMOLYTIC ANAEMIA [None]
  - HEPATIC CIRRHOSIS [None]
  - NERVOUS SYSTEM DISORDER [None]
  - NEUROLOGICAL SYMPTOM [None]
  - PYREXIA [None]
  - THROMBOTIC THROMBOCYTOPENIC PURPURA [None]
